FAERS Safety Report 13451764 (Version 3)
Quarter: 2017Q3

REPORT INFORMATION
  Report Type: Spontaneous
  Country: US (occurrence: US)
  Receive Date: 20170418
  Receipt Date: 20170727
  Transmission Date: 20171127
  Serious: No
  Sender: FDA-Public Use
  Company Number: US-PFIZER INC-2017164811

PATIENT
  Age: 77 Year
  Sex: Female
  Weight: 72.12 kg

DRUGS (1)
  1. GABAPENTIN. [Suspect]
     Active Substance: GABAPENTIN
     Indication: NEUROPATHY PERIPHERAL
     Dosage: UNK (6 TIMES A DAY)

REACTIONS (8)
  - Nausea [Unknown]
  - Drug ineffective for unapproved indication [Unknown]
  - Off label use [Unknown]
  - Feeling abnormal [Unknown]
  - Fear [Unknown]
  - Dizziness [Unknown]
  - Malaise [Unknown]
  - Condition aggravated [Unknown]
